FAERS Safety Report 25634193 (Version 1)
Quarter: 2025Q3

REPORT INFORMATION
  Report Type: Spontaneous
  Country: US (occurrence: US)
  Receive Date: 20250801
  Receipt Date: 20250801
  Transmission Date: 20251021
  Serious: Yes (Hospitalization, Other)
  Sender: PFIZER
  Company Number: US-PFIZER INC-PV202500092136

PATIENT
  Age: 73 Year
  Sex: Male

DRUGS (1)
  1. RIFABUTIN [Suspect]
     Active Substance: RIFABUTIN

REACTIONS (4)
  - Renal failure [Unknown]
  - Failure to thrive [Unknown]
  - Hypercalcaemia [Unknown]
  - Blood creatinine increased [Unknown]
